FAERS Safety Report 5892812-2 (Version None)
Quarter: 2008Q3

REPORT INFORMATION
  Report Type: 
  Country: None (occurrence: None)
  Receive Date: 20080922
  Receipt Date: 20080922
  Transmission Date: 20090109
  Serious: No
  Sender: FDA-Public Use
  Company Number: None

PATIENT
  Sex: Female
  Weight: 20 kg

DRUGS (3)
  1. PROPYL-THIOURACIL [Suspect]
     Indication: HYPERTHYROIDISM
     Dosage: 150MG QAM PO; 100 MG QPM AND QHS PO
     Route: 048
     Dates: start: 20070321, end: 20080320
  2. ATENOLOL [Concomitant]
  3. VITAMIN D [Concomitant]

REACTIONS (1)
  - TRANSAMINASES INCREASED [None]
